FAERS Safety Report 15293275 (Version 2)
Quarter: 2018Q3

REPORT INFORMATION
  Report Type: Spontaneous
  Country: US (occurrence: US)
  Receive Date: 20180820
  Receipt Date: 20180830
  Transmission Date: 20181010
  Serious: Yes (Hospitalization, Other)
  Sender: FDA-Public Use
  Company Number: US-AUROBINDO-AUR-APL-2018-040491

PATIENT
  Age: 2 Year
  Sex: Female

DRUGS (1)
  1. ACETAMINOPHEN 160MG/5ML [Suspect]
     Active Substance: ACETAMINOPHEN
     Indication: PYREXIA
     Dosage: ONE MILL (1 ML) OF PARACETAMOL ELIXIR (160 MG/5 ML)  WITH EACH DOSE
     Route: 065

REACTIONS (6)
  - Toxicity to various agents [Recovering/Resolving]
  - Drug level increased [Recovering/Resolving]
  - Adenovirus infection [Recovering/Resolving]
  - Hepatitis [Recovering/Resolving]
  - Acute hepatic failure [Recovering/Resolving]
  - Incorrect dose administered [Recovering/Resolving]
